FAERS Safety Report 7854869-9 (Version None)
Quarter: 2011Q4

REPORT INFORMATION
  Report Type: 
  Country: None (occurrence: None)
  Receive Date: 20111026
  Receipt Date: 20111019
  Transmission Date: 20120403
  Serious: No
  Sender: FDA-Public Use
  Company Number: US-BAYER-2011-103727

PATIENT
  Age: 31 Year
  Sex: Male

DRUGS (2)
  1. MAGNEVIST [Suspect]
     Indication: BACK PAIN
  2. MAGNEVIST [Suspect]
     Indication: NUCLEAR MAGNETIC RESONANCE IMAGING
     Dosage: 17 ML, ONCE
     Dates: start: 20111019, end: 20111019

REACTIONS (3)
  - SNEEZING [None]
  - VOMITING [None]
  - NASAL CONGESTION [None]
